FAERS Safety Report 8021760-7 (Version None)
Quarter: 2012Q1

REPORT INFORMATION
  Report Type: 
  Country: None (occurrence: None)
  Receive Date: 20120104
  Receipt Date: 20111226
  Transmission Date: 20120608
  Serious: Yes (Other)
  Sender: FDA-Public Use
  Company Number: PHHY2011JP109474

PATIENT
  Age: 18 Year
  Sex: Female

DRUGS (1)
  1. CARBAMAZEPINE [Suspect]
     Dosage: UNK UKN, UNK

REACTIONS (3)
  - FUNGAEMIA [None]
  - BONE MARROW FAILURE [None]
  - BACTERAEMIA [None]
